FAERS Safety Report 8920684 (Version 2)
Quarter: 2012Q4

REPORT INFORMATION
  Report Type: Report from Study
  Country: US (occurrence: US)
  Receive Date: 20121121
  Receipt Date: 20121123
  Transmission Date: 20130627
  Serious: Yes (Hospitalization)
  Sender: FDA-Public Use
  Company Number: US-ROCHE-1122463

PATIENT
  Sex: Female

DRUGS (4)
  1. PEG-INTERFERON ALFA 2A [Suspect]
     Indication: CHRONIC HEPATITIS C
     Route: 058
     Dates: start: 20120724, end: 20121108
  2. RIBAVIRIN [Suspect]
     Indication: CHRONIC HEPATITIS C
     Route: 065
     Dates: start: 20120724, end: 20121114
  3. REGLAN [Interacting]
     Indication: DYSPEPSIA
     Route: 065
  4. TOPAMAX [Interacting]
     Indication: MIGRAINE
     Route: 065

REACTIONS (8)
  - Influenza like illness [Unknown]
  - Tremor [Unknown]
  - Dizziness [Unknown]
  - Memory impairment [Unknown]
  - Delirium [Unknown]
  - Asthma [Unknown]
  - Bronchitis [Unknown]
  - Dyspnoea [Unknown]
